FAERS Safety Report 7268259-3 (Version None)
Quarter: 2011Q1

REPORT INFORMATION
  Report Type: 
  Country: None (occurrence: None)
  Receive Date: 20110201
  Receipt Date: 20110125
  Transmission Date: 20110831
  Serious: Yes (Death)
  Sender: FDA-Public Use
  Company Number: US-JNJFOC-20110108023

PATIENT
  Age: 50 Year
  Sex: Male

DRUGS (1)
  1. STELARA [Suspect]
     Indication: PSORIASIS
     Dosage: RECEIVED A TOTAL OF THREE INJECTIONS.
     Route: 058

REACTIONS (2)
  - MYOCARDIAL INFARCTION [None]
  - DRUG EFFECT DECREASED [None]
